FAERS Safety Report 18128529 (Version 1)
Quarter: 2020Q3

REPORT INFORMATION
  Report Type: Spontaneous
  Country: DE (occurrence: DE)
  Receive Date: 20200810
  Receipt Date: 20200810
  Transmission Date: 20201103
  Serious: Yes (Hospitalization)
  Sender: FDA-Public Use
  Company Number: DE-SA-2020SA204908

PATIENT

DRUGS (4)
  1. ENOXAPARIN [Concomitant]
     Active Substance: ENOXAPARIN
     Dosage: 80 MG, QD (80 MG, 0?0?1?0 PRE?FILLED SYRINGES)
     Route: 058
  2. TORASEMID [Concomitant]
     Active Substance: TORSEMIDE
     Dosage: 10 MG, QD (1?0?0?0)
     Route: 048
  3. PREDNISOLON [PREDNISOLONE] [Concomitant]
     Active Substance: PREDNISOLONE
     Dosage: 5 MG, QD (2?0?0?0)
     Route: 048
  4. CABAZITAXEL [Suspect]
     Active Substance: CABAZITAXEL
     Dosage: NK
     Route: 065

REACTIONS (4)
  - Dysuria [Unknown]
  - Haematuria [Unknown]
  - Chills [Unknown]
  - General physical health deterioration [Unknown]
